FAERS Safety Report 9742752 (Version 2)
Quarter: 2013Q4

REPORT INFORMATION
  Report Type: Spontaneous
  Country: US (occurrence: US)
  Receive Date: 20131210
  Receipt Date: 20131210
  Transmission Date: 20140711
  Serious: No
  Sender: FDA-Public Use
  Company Number: US-GILEAD-2009-0025733

PATIENT
  Sex: Male
  Weight: 127.91 kg

DRUGS (27)
  1. LETAIRIS [Suspect]
     Indication: PULMONARY ARTERIAL HYPERTENSION
     Route: 048
     Dates: start: 20090303
  2. VIAGRA [Concomitant]
  3. BUSPAR [Concomitant]
  4. GABAPENTIN [Concomitant]
  5. TIZANIDINE [Concomitant]
  6. METOPROLOL [Concomitant]
  7. SIMVASTATIN [Concomitant]
  8. FUROSEMIDE [Concomitant]
  9. ZOCOR [Concomitant]
  10. LORATADINE [Concomitant]
  11. VICODIN ES [Concomitant]
  12. LIBRAX [Concomitant]
  13. FLEXERIL [Concomitant]
  14. COUMADIN [Concomitant]
  15. LISINOPRIL [Concomitant]
  16. SUCRALFATE [Concomitant]
  17. DIPHENOXYLATE/ATROP SULF [Concomitant]
  18. METOCLOPRAMIDE [Concomitant]
  19. LEVOTHYROXINE [Concomitant]
  20. LOPERAMIDE [Concomitant]
  21. PROVIGIL [Concomitant]
  22. MORPHINE [Concomitant]
  23. IPRATROPIUM BROMIDE [Concomitant]
  24. FORMOTEROL FUMARATE [Concomitant]
  25. POLYETHYLENE GLYCOL [Concomitant]
  26. RANITIDINE [Concomitant]
  27. FOLIC ACID [Concomitant]

REACTIONS (2)
  - Vision blurred [Unknown]
  - Dyspnoea [Unknown]
